FAERS Safety Report 9915736 (Version 2)
Quarter: 2014Q1

REPORT INFORMATION
  Report Type: Spontaneous
  Country: BR (occurrence: None)
  Receive Date: 20140218
  Receipt Date: 20140310
  Transmission Date: 20141002
  Serious: Yes (Other)
  Sender: FDA-Public Use
  Company Number: VAL_02977_2014

PATIENT
  Age: 72 Year
  Sex: Male
  Weight: 88 kg

DRUGS (6)
  1. SELOZOK [Suspect]
     Indication: ARRHYTHMIA
     Dosage: 50 MG IN THE MORNING AND THE AFTERNOON ORAL, BID
     Route: 048
  2. DIOVAN AMLO [Suspect]
     Indication: HYPERTENSION
     Dosage: 1 DF QD (320/10) IN THE MORNING ORAL
     Route: 048
     Dates: start: 20140204, end: 20140211
  3. ANCORON [Suspect]
     Indication: ARRHYTHMIA
     Dosage: 1 TABLET MONDAYS THROUGH FIRDAYS ORAL
     Route: 048
  4. ALENIA /01538101/ [Concomitant]
  5. SPIRIVA [Concomitant]
  6. AAS [Concomitant]

REACTIONS (4)
  - Swelling face [None]
  - Local swelling [None]
  - Odynophagia [None]
  - Urine output decreased [None]
